FAERS Safety Report 23585609 (Version 1)
Quarter: 2024Q1

REPORT INFORMATION
  Report Type: Spontaneous
  Country: CZ (occurrence: CZ)
  Receive Date: 20240301
  Receipt Date: 20240301
  Transmission Date: 20240410
  Serious: Yes (Other)
  Sender: FDA-Public Use
  Company Number: CZ-SUN PHARMACEUTICAL INDUSTRIES LTD-2024RR-433755

PATIENT
  Age: 68 Year
  Sex: Female
  Weight: 56 kg

DRUGS (3)
  1. GEMCITABINE [Suspect]
     Active Substance: GEMCITABINE
     Indication: Chemotherapy
     Dosage: 1ST LINE- MONOTHERAPY
     Route: 040
     Dates: start: 202209
  2. GEMCITABINE [Suspect]
     Active Substance: GEMCITABINE
     Dosage: COMBINATION WITH NAB-PACLITAXEL
     Route: 040
     Dates: start: 202210
  3. PACLITAXEL [Suspect]
     Active Substance: PACLITAXEL
     Indication: Chemotherapy
     Dosage: COMBINATION WITH GEMCITABINE
     Route: 040
     Dates: start: 202210

REACTIONS (2)
  - Alopecia [Unknown]
  - Disease progression [Unknown]

NARRATIVE: CASE EVENT DATE: 20230501
